FAERS Safety Report 6206006-4 (Version None)
Quarter: 2009Q2

REPORT INFORMATION
  Report Type: 
  Country: None (occurrence: None)
  Receive Date: 20090528
  Receipt Date: 20090521
  Transmission Date: 20091009
  Serious: Yes (Hospitalization)
  Sender: FDA-Public Use
  Company Number: US-ELI_LILLY_AND_COMPANY-US200904005208

PATIENT
  Sex: Male
  Weight: 89.796 kg

DRUGS (7)
  1. PEMETREXED [Suspect]
     Indication: NON-SMALL CELL LUNG CANCER
     Dosage: 500 MG/M2, OTHER
     Route: 042
     Dates: start: 20090223, end: 20090420
  2. GEMCITABINE HCL [Suspect]
     Indication: NON-SMALL CELL LUNG CANCER
     Dosage: 1500 MG/M2, OTHER
     Route: 042
     Dates: start: 20090223, end: 20090420
  3. BEVACIZUMAB [Suspect]
     Indication: NON-SMALL CELL LUNG CANCER
     Dosage: 10 MG/KG, OTHER
     Route: 037
     Dates: start: 20090223, end: 20090420
  4. REQUIP [Concomitant]
     Dosage: 2 MG, 2/D
  5. FOSAMAX [Concomitant]
     Dosage: 70 MG, WEEKLY (1/W)
  6. ATROVENT [Concomitant]
  7. LORTAB [Concomitant]
     Dosage: 7.5 MG, AS NEEDED
     Dates: start: 20090223

REACTIONS (1)
  - ANEURYSM RUPTURED [None]
